FAERS Safety Report 5106662-8 (Version None)
Quarter: 2006Q3

REPORT INFORMATION
  Report Type: 
  Country: None (occurrence: None)
  Receive Date: 20060731
  Receipt Date: 20050726
  Transmission Date: 20061208
  Serious: Yes (Life-Threatening)
  Sender: FDA-Public Use
  Company Number: US-JNJFOC-20050701226

PATIENT
  Age: 36 Year
  Sex: Female
  Weight: 85.9 kg

DRUGS (3)
  1. RISPERIDONE [Suspect]
     Dates: start: 20050415, end: 20050509
  2. ATIVAN [Suspect]
     Indication: INSOMNIA
  3. COGENTIN [Concomitant]

REACTIONS (3)
  - HALLUCINATION, AUDITORY [None]
  - INTENTIONAL OVERDOSE [None]
  - SCHIZOPHRENIA [None]
